FAERS Safety Report 10873311 (Version 2)
Quarter: 2015Q2

REPORT INFORMATION
  Report Type: Spontaneous
  Country: BR (occurrence: BR)
  Receive Date: 20150227
  Receipt Date: 20150505
  Transmission Date: 20150821
  Serious: Yes (Other)
  Sender: FDA-Public Use
  Company Number: PHHY2015BR019845

PATIENT
  Age: 90 Year
  Sex: Male
  Weight: 85 kg

DRUGS (1)
  1. FORASEQ [Suspect]
     Active Substance: BUDESONIDE\FORMOTEROL FUMARATE
     Indication: LUNG DISORDER
     Dosage: 1 DF, Q12H (IN THE MORNING AND AT NIGHT)
     Route: 055

REACTIONS (14)
  - Abdominal pain [Unknown]
  - Pulmonary oedema [Unknown]
  - Respiratory disorder [Unknown]
  - Gallbladder disorder [Unknown]
  - Fatigue [Unknown]
  - Device malfunction [Unknown]
  - Gallbladder pain [Recovering/Resolving]
  - Off label use [Unknown]
  - Abdominal distension [Unknown]
  - Venous thrombosis [Unknown]
  - Cardiovascular disorder [Unknown]
  - Nervousness [Unknown]
  - Dyspnoea [Recovering/Resolving]
  - Cholelithiasis [Unknown]

NARRATIVE: CASE EVENT DATE: 20150206
